FAERS Safety Report 7805618-1 (Version None)
Quarter: 2011Q4

REPORT INFORMATION
  Report Type: 
  Country: None (occurrence: None)
  Receive Date: 20111010
  Receipt Date: 20110929
  Transmission Date: 20120403
  Serious: Yes (Other)
  Sender: FDA-Public Use
  Company Number: US-ASTRAZENECA-2011SE50909

PATIENT
  Age: 58 Year
  Sex: Female

DRUGS (1)
  1. NEXIUM [Suspect]
     Route: 048
     Dates: start: 19980101

REACTIONS (3)
  - GASTRIC ULCER HAEMORRHAGE [None]
  - CHEST PAIN [None]
  - DRUG DOSE OMISSION [None]
